FAERS Safety Report 8858865 (Version 2)
Quarter: 2012Q4

REPORT INFORMATION
  Report Type: 
  Country: CN (occurrence: CN)
  Receive Date: 20121024
  Receipt Date: 20121102
  Transmission Date: 20130627
  Serious: Yes (Other)
  Sender: FDA-Public Use
  Company Number: CN-MPIJNJ-2012-07095

PATIENT

DRUGS (3)
  1. VELCADE [Suspect]
     Indication: MULTIPLE MYELOMA
     Dosage: 1.3 mg/m2, UNK
     Route: 042
     Dates: start: 20120920, end: 201210
  2. MELPHALAN [Concomitant]
     Indication: MULTIPLE MYELOMA
  3. PREDNISONE [Concomitant]
     Indication: MULTIPLE MYELOMA

REACTIONS (2)
  - Platelet count decreased [Recovered/Resolved]
  - Pneumonia fungal [Recovering/Resolving]
